FAERS Safety Report 16408921 (Version 3)
Quarter: 2019Q3

REPORT INFORMATION
  Report Type: Report from Study
  Country: None (occurrence: CH)
  Receive Date: 20190610
  Receipt Date: 20190710
  Transmission Date: 20191004
  Serious: Yes (Other)
  Sender: FDA-Public Use
  Company Number: CH-ABBVIE-19S-151-2775883-00

PATIENT
  Sex: Male

DRUGS (3)
  1. DUODOPA [Suspect]
     Active Substance: CARBIDOPA\LEVODOPA
     Indication: PARKINSON^S DISEASE
     Dosage: 16 H THERAPY
     Route: 050
     Dates: start: 20160829, end: 20180913
  2. DUODOPA [Suspect]
     Active Substance: CARBIDOPA\LEVODOPA
     Dosage: MORNING DOSE 2.5 ML, CONTINUOUS RATE DAY 2.8 ML/H, EXTRA DOSE 0.5 ML
     Route: 050
     Dates: start: 20180913, end: 20190227
  3. DUODOPA [Suspect]
     Active Substance: CARBIDOPA\LEVODOPA
     Dosage: MORNING DOSE 2.5 ML, CONTINUOUS RATE DAY 2.4 ML/H, EXTRA DOSE 0.2 ML, 16 H THERAPY
     Route: 050
     Dates: start: 20190227

REACTIONS (7)
  - Abdominal pain [Recovered/Resolved]
  - Gastrointestinal ulcer [Recovered/Resolved]
  - Gastric ulcer haemorrhage [Recovered/Resolved]
  - Nausea [Recovered/Resolved]
  - Bezoar [Recovered/Resolved]
  - Weight decreased [Recovering/Resolving]
  - Decreased appetite [Recovered/Resolved]
